FAERS Safety Report 10051654 (Version 1)
Quarter: 2014Q2

REPORT INFORMATION
  Report Type: Spontaneous
  Country: GB (occurrence: GB)
  Receive Date: 20140401
  Receipt Date: 20140401
  Transmission Date: 20141212
  Serious: Yes (Hospitalization, Other)
  Sender: FDA-Public Use
  Company Number: GB-MYLANLABS-2014S1006628

PATIENT
  Age: 84 Year
  Sex: Female

DRUGS (10)
  1. WARFARIN SODIUM [Suspect]
     Indication: ANTICOAGULANT THERAPY
     Dosage: RESTARTED ON 06JAN2014
     Route: 048
  2. ELIQUIS [Suspect]
     Indication: CEREBROVASCULAR ACCIDENT
     Route: 048
     Dates: start: 20131204, end: 20140103
  3. ELIQUIS [Suspect]
     Indication: ATRIAL FIBRILLATION
     Route: 048
     Dates: start: 20131204, end: 20140103
  4. DOXAZOSIN [Concomitant]
  5. EZETIMIBE [Concomitant]
  6. FELODIPINE [Concomitant]
     Dosage: MR TABS
  7. FUROSEMIDE [Concomitant]
  8. ISOSORBIDE MONONITRATE [Concomitant]
     Dosage: MR TABS
  9. LANSOPRAZOLE [Concomitant]
  10. NICORANDIL [Concomitant]

REACTIONS (2)
  - Ischaemic stroke [Unknown]
  - Renal impairment [Unknown]
